FAERS Safety Report 19541168 (Version 1)
Quarter: 2021Q3

REPORT INFORMATION
  Report Type: Spontaneous
  Country: JP (occurrence: JP)
  Receive Date: 20210713
  Receipt Date: 20210713
  Transmission Date: 20211014
  Serious: Yes (Death)
  Sender: FDA-Public Use
  Company Number: JP-ABBVIE-21K-087-3878895-00

PATIENT
  Age: 68 Year

DRUGS (1)
  1. VENCLEXTA [Suspect]
     Active Substance: VENETOCLAX
     Indication: ACUTE MYELOID LEUKAEMIA
     Route: 048
     Dates: start: 20210414

REACTIONS (4)
  - Blood creatinine increased [Unknown]
  - Blood potassium increased [Unknown]
  - Hyperphosphataemia [Unknown]
  - Death [Fatal]

NARRATIVE: CASE EVENT DATE: 2021
